FAERS Safety Report 21349576 (Version 1)
Quarter: 2022Q3

REPORT INFORMATION
  Report Type: Spontaneous
  Country: US (occurrence: None)
  Receive Date: 20220917
  Receipt Date: 20220917
  Transmission Date: 20221027
  Serious: Yes (Hospitalization, Disabling)
  Sender: FDA-Public Use
  Company Number: None

PATIENT
  Age: 29 Month
  Sex: Male
  Weight: 12.15 kg

DRUGS (9)
  1. OXCARBAZEPINE [Suspect]
     Active Substance: OXCARBAZEPINE
     Indication: Epilepsy
     Dates: start: 20201014, end: 20220909
  2. VALPROIC ACID [Suspect]
     Active Substance: VALPROIC ACID
  3. CLOBAZAM [Concomitant]
     Active Substance: CLOBAZAM
  4. RUFINAMIDE [Concomitant]
     Active Substance: RUFINAMIDE
  5. BACLOFEN [Concomitant]
     Active Substance: BACLOFEN
  6. ARTANE [Concomitant]
     Active Substance: TRIHEXYPHENIDYL HYDROCHLORIDE
  7. FLOVENT [Concomitant]
     Active Substance: FLUTICASONE PROPIONATE
  8. TYLENOL [Concomitant]
     Active Substance: ACETAMINOPHEN
  9. MOTRIN [Concomitant]
     Active Substance: IBUPROFEN

REACTIONS (3)
  - Inappropriate antidiuretic hormone secretion [None]
  - Weight decreased [None]
  - Urine flow decreased [None]

NARRATIVE: CASE EVENT DATE: 20220820
